FAERS Safety Report 8287866-2 (Version None)
Quarter: 2012Q2

REPORT INFORMATION
  Report Type: 
  Country: None (occurrence: None)
  Receive Date: 20120411
  Receipt Date: 20120411
  Transmission Date: 20120825
  Serious: No
  Sender: FDA-Public Use
  Company Number: None

PATIENT

DRUGS (1)
  1. ZYTIGA [Suspect]

REACTIONS (12)
  - JOINT SWELLING [None]
  - MUSCULOSKELETAL DISCOMFORT [None]
  - NOCTURIA [None]
  - NASOPHARYNGITIS [None]
  - MUSCULAR WEAKNESS [None]
  - POLLAKIURIA [None]
  - DIZZINESS [None]
  - PAIN IN EXTREMITY [None]
  - COUGH [None]
  - OEDEMA PERIPHERAL [None]
  - MYALGIA [None]
  - CONFUSIONAL STATE [None]
